FAERS Safety Report 22196657 (Version 2)
Quarter: 2023Q2

REPORT INFORMATION
  Report Type: Spontaneous
  Country: AU (occurrence: AU)
  Receive Date: 20230411
  Receipt Date: 20230426
  Transmission Date: 20230722
  Serious: Yes (Life-Threatening, Hospitalization, Other)
  Sender: FDA-Public Use
  Company Number: AU-MACLEODS PHARMACEUTICALS US LTD-MAC2023040683

PATIENT

DRUGS (1)
  1. LIDOCAINE [Suspect]
     Active Substance: LIDOCAINE
     Indication: Product used for unknown indication
     Dosage: 15 MILLILITER (LOCAL 1% LIDOCAINE 15 ML INJECTION, GESTATION PERIOD AT TIME OF EXPOSURE WAS 40 WEEKS
     Route: 064

REACTIONS (10)
  - Neonatal seizure [Recovered/Resolved]
  - Infantile apnoea [Recovered/Resolved]
  - Hypotonia neonatal [Recovered/Resolved]
  - Pupil fixed [Recovered/Resolved]
  - Bradycardia neonatal [Recovered/Resolved]
  - Methaemoglobinaemia [Recovered/Resolved]
  - Electrocardiogram QT prolonged [Recovered/Resolved]
  - Neonatal respiratory acidosis [Recovered/Resolved]
  - Local anaesthetic systemic toxicity [Recovering/Resolving]
  - Foetal exposure during delivery [Unknown]
